FAERS Safety Report 6081377-0 (Version None)
Quarter: 2009Q1

REPORT INFORMATION
  Report Type: 
  Country: None (occurrence: None)
  Receive Date: 20090218
  Receipt Date: 20090207
  Transmission Date: 20090719
  Serious: Yes (Other)
  Sender: FDA-Public Use
  Company Number: US-CELGENEUS-163-21880-09020552

PATIENT
  Sex: Male
  Weight: 92.5 kg

DRUGS (7)
  1. REVLIMID [Suspect]
     Route: 048
     Dates: start: 20080408, end: 20080521
  2. REVLIMID [Suspect]
     Route: 048
  3. MELPHALAN [Suspect]
     Route: 065
     Dates: start: 20080408, end: 20080509
  4. MELPHALAN [Suspect]
     Route: 048
  5. PREDNISONE [Suspect]
     Route: 048
     Dates: start: 20080408, end: 20080509
  6. PREDNISONE [Suspect]
     Route: 048
  7. ASPIRIN [Concomitant]
     Indication: DRUG USE FOR UNKNOWN INDICATION
     Route: 048

REACTIONS (1)
  - HYPERURICAEMIA [None]
